FAERS Safety Report 7375279-7 (Version None)
Quarter: 2011Q1

REPORT INFORMATION
  Report Type: 
  Country: None (occurrence: None)
  Receive Date: 20110325
  Receipt Date: 20110318
  Transmission Date: 20110831
  Serious: Yes (Death, Hospitalization, Other)
  Sender: FDA-Public Use
  Company Number: FR-GENZYME-CAMP-1001257

PATIENT
  Sex: Male
  Weight: 95 kg

DRUGS (7)
  1. CAMPATH [Suspect]
     Indication: CHRONIC LYMPHOCYTIC LEUKAEMIA
     Dosage: 30 MG, QD
     Route: 058
     Dates: start: 20101122, end: 20101122
  2. ATARAX [Concomitant]
     Indication: PREMEDICATION
     Route: 065
  3. DAFALGAN [Concomitant]
     Indication: PRODUCT USED FOR UNKNOWN INDICATION
     Route: 065
  4. ZELITREX [Concomitant]
     Indication: PRODUCT USED FOR UNKNOWN INDICATION
     Route: 065
  5. BACTRIM [Concomitant]
     Indication: PRODUCT USED FOR UNKNOWN INDICATION
     Route: 065
  6. ZYLORIC [Concomitant]
     Indication: PRODUCT USED FOR UNKNOWN INDICATION
     Route: 065
  7. TAGAMET [Concomitant]
     Indication: PREMEDICATION
     Route: 065

REACTIONS (10)
  - SPLENOMEGALY [None]
  - RESPIRATORY ACIDOSIS [None]
  - INJECTION SITE OEDEMA [None]
  - HEPATOMEGALY [None]
  - PYREXIA [None]
  - PRURITUS [None]
  - SYSTEMIC CANDIDA [None]
  - LYMPHADENOPATHY [None]
  - HYPERKALAEMIA [None]
  - RESPIRATORY DISTRESS [None]
